FAERS Safety Report 13678648 (Version 1)
Quarter: 2017Q2

REPORT INFORMATION
  Report Type: Spontaneous
  Country: US (occurrence: US)
  Receive Date: 20170622
  Receipt Date: 20170622
  Transmission Date: 20170830
  Serious: No
  Sender: FDA-Public Use
  Company Number: US-SA-2016SA155919

PATIENT
  Age: 11 Year
  Sex: Male
  Weight: 25.4 kg

DRUGS (11)
  1. CEREZYME [Suspect]
     Active Substance: IMIGLUCERASE
     Indication: GAUCHER^S DISEASE
     Dosage: ACCREDO FIRST SHIPPED ON 04-DEC-2013 DOSE:110.2 UNIT(S)/KILOGRAM BODYWEIGHT
     Route: 041
  2. NORMAL SALINE [Concomitant]
     Active Substance: SODIUM CHLORIDE
     Dosage: AS DIRECTED
     Route: 042
     Dates: start: 20160218
  3. L-M-X [Concomitant]
     Route: 061
     Dates: start: 20160218
  4. LEXAPRO [Concomitant]
     Active Substance: ESCITALOPRAM OXALATE
     Route: 048
     Dates: start: 20150930
  5. HEPARIN [Concomitant]
     Active Substance: HEPARIN SODIUM
     Indication: FLUSHING
     Dosage: AS DIRECTED DOSE:100 UNIT(S)
     Route: 042
     Dates: start: 20160218
  6. DIPHENHYDRAMINE. [Concomitant]
     Active Substance: DIPHENHYDRAMINE
     Indication: ANAPHYLACTIC REACTION
     Dosage: DOSE:2.5 MILLIGRAM(S)/MILLILITRE
     Route: 048
     Dates: start: 20160218
  7. HUMALOG [Concomitant]
     Active Substance: INSULIN LISPRO
     Dosage: AS DIRECTED DOSE:1 UNIT(S)
     Route: 058
     Dates: start: 20150219
  8. LANTUS [Concomitant]
     Active Substance: INSULIN GLARGINE
     Dosage: EVERY EVENING DOSE:7 UNIT(S)
     Route: 058
     Dates: start: 20150219
  9. EPIPEN [Concomitant]
     Active Substance: EPINEPHRINE
     Indication: ANAPHYLACTIC REACTION
     Route: 030
     Dates: start: 20160218
  10. LIDOCAINE/PRILOCAINE [Concomitant]
     Route: 061
     Dates: start: 20160218
  11. SODIUM CHLORIDE. [Concomitant]
     Active Substance: SODIUM CHLORIDE
     Indication: FLUSHING
     Dosage: AS DIRECTED
     Route: 042
     Dates: start: 20160218

REACTIONS (2)
  - Nausea [Unknown]
  - Diarrhoea [Unknown]

NARRATIVE: CASE EVENT DATE: 20160811
